FAERS Safety Report 6981422-1 (Version None)
Quarter: 2010Q3

REPORT INFORMATION
  Report Type: 
  Country: None (occurrence: None)
  Receive Date: 20100914
  Receipt Date: 20090914
  Transmission Date: 20110219
  Serious: No
  Sender: FDA-Public Use
  Company Number: US-BRISTOL-MYERS SQUIBB COMPANY-14777585

PATIENT
  Age: 81 Year
  Sex: Female

DRUGS (1)
  1. MEGACE [Suspect]
     Dosage: MEGACE SUSPENSION 1 TEASPOON DAILY

REACTIONS (2)
  - ABDOMINAL DISCOMFORT [None]
  - WEIGHT INCREASED [None]
